FAERS Safety Report 10084496 (Version 1)
Quarter: 2014Q2

REPORT INFORMATION
  Report Type: Spontaneous
  Country: US (occurrence: US)
  Receive Date: 20140417
  Receipt Date: 20140417
  Transmission Date: 20141212
  Serious: Yes (Other)
  Sender: FDA-Public Use
  Company Number: US-FRI-1000065974

PATIENT
  Age: 60 Year
  Sex: Female

DRUGS (3)
  1. FETZIMA [Suspect]
     Indication: MAJOR DEPRESSION
     Dosage: 40MG
     Route: 048
     Dates: start: 20140312, end: 20140319
  2. WELLBUTRIN [Concomitant]
     Indication: DEPRESSION
     Dosage: 75MG
  3. CONCERTA [Concomitant]
     Indication: DEPRESSION
     Dosage: 18MG

REACTIONS (1)
  - Serotonin syndrome [Recovered/Resolved]
